FAERS Safety Report 8225895 (Version 2)
Quarter: 2012Q4

REPORT INFORMATION
  Report Type: 
  Country: US (occurrence: US)
  Receive Date: 20111103
  Receipt Date: 20121015
  Transmission Date: 20130627
  Serious: No
  Sender: FDA-Public Use
  Company Number: US-BRISTOL-MYERS SQUIBB COMPANY-15364367

PATIENT
  Age: 68 Year
  Sex: Female
  Weight: 63 kg

DRUGS (2)
  1. KENALOG-40 INJ [Suspect]
     Indication: KELOID SCAR
     Dosage: received into an area above left breast
     Dates: start: 20090318
  2. PRILOSEC [Concomitant]

REACTIONS (1)
  - Injection site atrophy [Unknown]
